FAERS Safety Report 16795248 (Version 2)
Quarter: 2019Q3

REPORT INFORMATION
  Report Type: Report from Study
  Country: JP (occurrence: JP)
  Receive Date: 20190911
  Receipt Date: 20190930
  Transmission Date: 20191005
  Serious: Yes (Hospitalization, Other)
  Sender: FDA-Public Use
  Company Number: JP-ASTRAZENECA-2019SF06523

PATIENT
  Age: 21591 Day
  Sex: Female

DRUGS (35)
  1. CARBOPLATIN. [Suspect]
     Active Substance: CARBOPLATIN
     Indication: OVARIAN CANCER
     Dosage: 652.0MG ONCE/SINGLE ADMINISTRATION
     Route: 065
     Dates: start: 20190417, end: 20190417
  2. CARBOPLATIN. [Suspect]
     Active Substance: CARBOPLATIN
     Indication: OVARIAN CANCER
     Dosage: 652.0MG ONCE/SINGLE ADMINISTRATION
     Route: 065
     Dates: start: 20190703, end: 20190703
  3. PACLITAXEL. [Suspect]
     Active Substance: PACLITAXEL
     Indication: OVARIAN CANCER
     Dosage: 295.0MG ONCE/SINGLE ADMINISTRATION
     Route: 065
     Dates: start: 20190612, end: 20190612
  4. BEVACIZUMAB. [Suspect]
     Active Substance: BEVACIZUMAB
     Indication: OVARIAN CANCER
     Dosage: 970.0MG ONCE/SINGLE ADMINISTRATION
     Route: 065
     Dates: start: 20190327, end: 20190327
  5. NERIZA [Concomitant]
     Indication: HAEMORRHOIDS
     Dosage: 1 APPLICATION, DAILY
     Route: 054
     Dates: start: 20190417
  6. GRANISETRON [Concomitant]
     Active Substance: GRANISETRON
     Indication: PREMEDICATION
     Route: 042
     Dates: start: 20190306
  7. DEXART [Concomitant]
     Active Substance: DEXAMETHASONE SODIUM PHOSPHATE
     Indication: PREMEDICATION
     Route: 042
     Dates: start: 20190306
  8. DURVALUMAB. [Suspect]
     Active Substance: DURVALUMAB
     Indication: OVARIAN CANCER
     Dosage: 1120 MG Q3W FROM DAY 1 OF CYCLE 2 FOR A TOTAL OF 15 MONTHS OF TOTAL TREATMENT
     Route: 042
     Dates: start: 20190703, end: 20190703
  9. OLAPARIB. [Suspect]
     Active Substance: OLAPARIB
     Indication: OVARIAN CANCER
     Dosage: TWO TIMES A DAY
     Route: 048
  10. PACLITAXEL. [Suspect]
     Active Substance: PACLITAXEL
     Indication: OVARIAN CANCER
     Dosage: 295.0MG ONCE/SINGLE ADMINISTRATION
     Route: 065
     Dates: start: 20190306, end: 20190306
  11. PACLITAXEL. [Suspect]
     Active Substance: PACLITAXEL
     Indication: OVARIAN CANCER
     Dosage: 295.0MG ONCE/SINGLE ADMINISTRATION
     Route: 065
     Dates: start: 20190327, end: 20190327
  12. ALOSENN [Concomitant]
     Indication: CONSTIPATION
     Route: 048
     Dates: start: 20190308
  13. OMNIPAQUE [Concomitant]
     Active Substance: IOHEXOL
     Indication: SCAN WITH CONTRAST
     Route: 042
     Dates: start: 20190301
  14. DURVALUMAB. [Suspect]
     Active Substance: DURVALUMAB
     Indication: OVARIAN CANCER
     Dosage: 1120 MG Q3W FROM DAY 1 OF CYCLE 2 FOR A TOTAL OF 15 MONTHS OF TOTAL TREATMENT
     Route: 042
     Dates: start: 20190327, end: 20190327
  15. MAGNESIUM OXIDE. [Concomitant]
     Active Substance: MAGNESIUM OXIDE
     Indication: CONSTIPATION
     Route: 048
     Dates: start: 20190305
  16. RANITIDINE. [Concomitant]
     Active Substance: RANITIDINE
     Indication: PREMEDICATION
     Route: 042
     Dates: start: 20190306
  17. SOLACET F [Concomitant]
     Active Substance: CALCIUM CHLORIDE\POTASSIUM CHLORIDE\SODIUM ACETATE\SODIUM CHLORIDE
     Indication: FLUID REPLACEMENT
     Route: 042
     Dates: start: 20190306
  18. CARBOPLATIN. [Suspect]
     Active Substance: CARBOPLATIN
     Indication: OVARIAN CANCER
     Dosage: 652.0MG ONCE/SINGLE ADMINISTRATION
     Route: 065
     Dates: start: 20190327, end: 20190327
  19. PACLITAXEL. [Suspect]
     Active Substance: PACLITAXEL
     Indication: OVARIAN CANCER
     Dosage: 295.0MG ONCE/SINGLE ADMINISTRATION
     Route: 065
     Dates: start: 20190703, end: 20190703
  20. BEVACIZUMAB. [Suspect]
     Active Substance: BEVACIZUMAB
     Indication: OVARIAN CANCER
     Dosage: 970.0MG/KG ONCE/SINGLE ADMINISTRATION
     Route: 065
     Dates: start: 20190703, end: 20190703
  21. ZOLPIDEM TARTRATE. [Concomitant]
     Active Substance: ZOLPIDEM TARTRATE
     Indication: INSOMNIA
     Route: 048
     Dates: start: 20190520
  22. BISONO [Concomitant]
     Active Substance: BISOPROLOL
     Indication: HYPERTHYROIDISM
     Route: 062
     Dates: start: 20190530
  23. CARBOPLATIN. [Suspect]
     Active Substance: CARBOPLATIN
     Indication: OVARIAN CANCER
     Dosage: 652.0MG ONCE/SINGLE ADMINISTRATION
     Route: 065
     Dates: start: 20190306, end: 20190306
  24. LOXOPROFEN [Concomitant]
     Active Substance: LOXOPROFEN
     Indication: HEADACHE
     Route: 048
     Dates: start: 20190329
  25. CARVEDILOL. [Concomitant]
     Active Substance: CARVEDILOL
     Indication: HYPERTHYROIDISM
     Route: 048
     Dates: start: 20190607
  26. SOLDEM 3A [Concomitant]
     Active Substance: CARBOHYDRATES\POTASSIUM CHLORIDE\SODIUM CHLORIDE\SODIUM LACTATE
     Indication: FLUID REPLACEMENT
     Route: 042
     Dates: start: 20190307
  27. SOLDEM 3A [Concomitant]
     Active Substance: CARBOHYDRATES\POTASSIUM CHLORIDE\SODIUM CHLORIDE\SODIUM LACTATE
     Indication: FLUID REPLACEMENT
     Route: 042
     Dates: start: 20190513, end: 20190514
  28. DURVALUMAB. [Suspect]
     Active Substance: DURVALUMAB
     Indication: OVARIAN CANCER
     Dosage: 1120 MG Q3W FROM DAY 1 OF CYCLE 2 FOR A TOTAL OF 15 MONTHS OF TOTAL TREATMENT
     Route: 042
     Dates: start: 20190417, end: 20190417
  29. DURVALUMAB. [Suspect]
     Active Substance: DURVALUMAB
     Indication: OVARIAN CANCER
     Dosage: 1120 MG Q3W FROM DAY 1 OF CYCLE 2 FOR A TOTAL OF 15 MONTHS OF TOTAL TREATMENT
     Route: 042
     Dates: start: 20190612, end: 20190612
  30. POLARAMINE [Concomitant]
     Active Substance: DEXCHLORPHENIRAMINE MALEATE
     Indication: PREMEDICATION
     Route: 042
     Dates: start: 20190306
  31. PACLITAXEL. [Suspect]
     Active Substance: PACLITAXEL
     Indication: OVARIAN CANCER
     Dosage: 295.0MG ONCE/SINGLE ADMINISTRATION
     Route: 065
     Dates: start: 20190417, end: 20190417
  32. BEVACIZUMAB. [Suspect]
     Active Substance: BEVACIZUMAB
     Indication: OVARIAN CANCER
     Dosage: 970.0MG ONCE/SINGLE ADMINISTRATION
     Route: 065
     Dates: start: 20190612, end: 20190612
  33. CARBOPLATIN. [Suspect]
     Active Substance: CARBOPLATIN
     Indication: OVARIAN CANCER
     Dosage: 652.0MG ONCE/SINGLE ADMINISTRATION
     Route: 065
     Dates: start: 20190612, end: 20190612
  34. LOXOPROFEN [Concomitant]
     Active Substance: LOXOPROFEN
     Indication: HEADACHE
     Route: 048
     Dates: start: 20190517, end: 20190523
  35. SOLDEM 3A [Concomitant]
     Active Substance: CARBOHYDRATES\POTASSIUM CHLORIDE\SODIUM CHLORIDE\SODIUM LACTATE
     Indication: FLUID REPLACEMENT
     Route: 042
     Dates: start: 20190515, end: 20190515

REACTIONS (2)
  - Hepatic function abnormal [Not Recovered/Not Resolved]
  - Drug-induced liver injury [Recovered/Resolved]

NARRATIVE: CASE EVENT DATE: 20190711
